FAERS Safety Report 7620245-7 (Version None)
Quarter: 2011Q3

REPORT INFORMATION
  Report Type: 
  Country: None (occurrence: None)
  Receive Date: 20110719
  Receipt Date: 20110707
  Transmission Date: 20111222
  Serious: Yes (Other)
  Sender: FDA-Public Use
  Company Number: PHHY2011US50783

PATIENT
  Sex: Male
  Weight: 80.8 kg

DRUGS (4)
  1. DIURETICS [Concomitant]
  2. IMMUNOSUPPRESSANTS [Concomitant]
  3. EXJADE [Suspect]
     Indication: APLASTIC ANAEMIA
     Dosage: 1500 MG, DAILY
     Route: 048
     Dates: start: 20110501
  4. EXJADE [Suspect]
     Indication: IRON OVERLOAD

REACTIONS (7)
  - VOMITING [None]
  - HEADACHE [None]
  - FATIGUE [None]
  - BLOOD CREATININE INCREASED [None]
  - EYE PAIN [None]
  - LETHARGY [None]
  - DIZZINESS [None]
